FAERS Safety Report 8826364 (Version 1)
Quarter: 2012Q4

REPORT INFORMATION
  Report Type: 
  Country: IT (occurrence: IT)
  Receive Date: 20121005
  Receipt Date: 20121005
  Transmission Date: 20130627
  Serious: Yes (Other)
  Sender: FDA-Public Use
  Company Number: PHHY2012IT085136

PATIENT
  Age: 33 Year
  Sex: Male

DRUGS (4)
  1. BASILIXIMAB [Suspect]
  2. MYCOPHENOLATE MOFETIL [Concomitant]
  3. TACROLIMUS [Concomitant]
  4. METHYLPREDNISOLONE [Concomitant]

REACTIONS (14)
  - Coma [Not Recovered/Not Resolved]
  - West Nile viral infection [Recovered/Resolved]
  - Tremor [Unknown]
  - Fatigue [Unknown]
  - Pyrexia [Unknown]
  - Myalgia [Unknown]
  - Dysarthria [Unknown]
  - Hypertonia [Unknown]
  - Pleocytosis [Unknown]
  - Leukopenia [Unknown]
  - Confusional state [Unknown]
  - Mental impairment [Unknown]
  - VIIth nerve paralysis [Unknown]
  - Unresponsive to stimuli [Unknown]
